FAERS Safety Report 11689624 (Version 2)
Quarter: 2015Q4

REPORT INFORMATION
  Report Type: Spontaneous
  Country: CA (occurrence: CA)
  Receive Date: 20151102
  Receipt Date: 20151110
  Transmission Date: 20160304
  Serious: Yes (Other)
  Sender: FDA-Public Use
  Company Number: CA-SA-2015SA173079

PATIENT
  Sex: Female

DRUGS (6)
  1. ARAVA [Suspect]
     Active Substance: LEFLUNOMIDE
     Indication: RHEUMATOID ARTHRITIS
     Route: 048
  2. METHOTREXATE [Suspect]
     Active Substance: METHOTREXATE
     Indication: RHEUMATOID ARTHRITIS
     Route: 048
  3. SULFASALAZINE. [Suspect]
     Active Substance: SULFASALAZINE
     Indication: RHEUMATOID ARTHRITIS
     Route: 048
  4. RITUXAN [Concomitant]
     Active Substance: RITUXIMAB
     Dosage: START DATE: OVER THE PAST FOUR YEARS?INFUSION
  5. VITAMIN C [Concomitant]
     Active Substance: ASCORBIC ACID
  6. PLAQUENIL [Suspect]
     Active Substance: HYDROXYCHLOROQUINE SULFATE
     Indication: RHEUMATOID ARTHRITIS
     Route: 048

REACTIONS (8)
  - Arthralgia [Unknown]
  - Joint swelling [Unknown]
  - Haematemesis [Unknown]
  - Nausea [Unknown]
  - Rheumatoid arthritis [Unknown]
  - Joint stiffness [Unknown]
  - Vomiting [Unknown]
  - Gastric disorder [Unknown]
